FAERS Safety Report 25422582 (Version 1)
Quarter: 2025Q2

REPORT INFORMATION
  Report Type: Spontaneous
  Country: GB (occurrence: GB)
  Receive Date: 20250611
  Receipt Date: 20250611
  Transmission Date: 20250717
  Serious: Yes (Other)
  Sender: INNOVIVA
  Company Number: 202505004030

PATIENT

DRUGS (1)
  1. ZEVTERA [Suspect]
     Active Substance: CEFTOBIPROLE MEDOCARIL SODIUM
     Indication: Cystic fibrosis
     Dosage: 500 MG, TID
     Route: 042
     Dates: start: 202009

REACTIONS (2)
  - Pancytopenia [Unknown]
  - Off label use [Unknown]

NARRATIVE: CASE EVENT DATE: 20200901
